FAERS Safety Report 20584738 (Version 2)
Quarter: 2022Q2

REPORT INFORMATION
  Report Type: Spontaneous
  Country: PK (occurrence: PK)
  Receive Date: 20220311
  Receipt Date: 20220526
  Transmission Date: 20220720
  Serious: Yes (Other)
  Sender: FDA-Public Use
  Company Number: PK-NOVARTISPH-NVSC2022PK056451

PATIENT

DRUGS (1)
  1. SIMULECT [Suspect]
     Active Substance: BASILIXIMAB
     Indication: Product used for unknown indication
     Dosage: UNK
     Route: 065

REACTIONS (1)
  - Transplant rejection [Unknown]
